FAERS Safety Report 13057790 (Version 2)
Quarter: 2017Q1

REPORT INFORMATION
  Report Type: Spontaneous
  Country: US (occurrence: US)
  Receive Date: 20161223
  Receipt Date: 20170220
  Transmission Date: 20170428
  Serious: Yes (Other)
  Sender: FDA-Public Use
  Company Number: US-009507513-1612USA008522

PATIENT
  Age: 35 Year
  Sex: Female
  Weight: 76.19 kg

DRUGS (1)
  1. NUVARING [Suspect]
     Active Substance: ETHINYL ESTRADIOL\ETONOGESTREL
     Indication: CONTRACEPTION
     Dosage: RING,.015/.12, UNK
     Route: 067
     Dates: end: 20161130

REACTIONS (5)
  - Unintended pregnancy [Recovered/Resolved]
  - Device expulsion [Unknown]
  - Abortion spontaneous [Unknown]
  - Pregnancy on contraceptive [Recovered/Resolved]
  - Vaginal haemorrhage [Unknown]

NARRATIVE: CASE EVENT DATE: 2016
